FAERS Safety Report 20075583 (Version 2)
Quarter: 2022Q2

REPORT INFORMATION
  Report Type: Spontaneous
  Country: CA (occurrence: CA)
  Receive Date: 20211116
  Receipt Date: 20220502
  Transmission Date: 20220721
  Serious: Yes (Death, Hospitalization)
  Sender: FDA-Public Use
  Company Number: CA-SAMSUNG BIOEPIS-SB-2021-26435

PATIENT
  Age: 75 Year
  Sex: Male
  Weight: 68 kg

DRUGS (4)
  1. INFLIXIMAB [Suspect]
     Active Substance: INFLIXIMAB
     Indication: Colitis ulcerative
     Route: 042
  2. PENTASA [Concomitant]
     Active Substance: MESALAMINE
     Indication: Product used for unknown indication
     Dosage: UNKNOWN
     Route: 065
  3. PREDNISONE [Concomitant]
     Active Substance: PREDNISONE
     Indication: Product used for unknown indication
     Route: 048
  4. PREDNISONE [Concomitant]
     Active Substance: PREDNISONE
     Route: 048

REACTIONS (15)
  - Death [Fatal]
  - Heart rate decreased [Fatal]
  - Malaise [Fatal]
  - Seizure [Fatal]
  - Paralysis [Fatal]
  - Blood pressure diastolic decreased [Fatal]
  - Body temperature decreased [Fatal]
  - Condition aggravated [Fatal]
  - Haemorrhoids [Fatal]
  - Hypertension [Fatal]
  - Infection [Fatal]
  - Nephropathy [Fatal]
  - Inappropriate schedule of product administration [Fatal]
  - Off label use [Fatal]
  - Product use issue [Unknown]
